FAERS Safety Report 15480325 (Version 2)
Quarter: 2018Q4

REPORT INFORMATION
  Report Type: Not Available
  Country: US (occurrence: US)
  Receive Date: 20181009
  Receipt Date: 20181117
  Transmission Date: 20190205
  Serious: No
  Sender: FDA-Public Use
  Company Number: US-NEUROCRINE BIOSCIENCES INC.-2018NBI02837

PATIENT
  Age: 74 Year
  Sex: Female

DRUGS (1)
  1. INGREZZA [Suspect]
     Active Substance: VALBENAZINE
     Indication: TARDIVE DYSKINESIA
     Route: 048
     Dates: start: 20180813, end: 20180913

REACTIONS (2)
  - Mental disorder [Recovered/Resolved]
  - Drooling [Recovered/Resolved]

NARRATIVE: CASE EVENT DATE: 20180813
